FAERS Safety Report 24741649 (Version 1)
Quarter: 2024Q4

REPORT INFORMATION
  Report Type: Spontaneous
  Country: CO (occurrence: CO)
  Receive Date: 20241217
  Receipt Date: 20241217
  Transmission Date: 20250114
  Serious: Yes (Life-Threatening, Other)
  Sender: ALKEM
  Company Number: CO-ALKEM LABORATORIES LIMITED-CO-ALKEM-2024-25968

PATIENT
  Age: 49 Year
  Sex: Male

DRUGS (4)
  1. LINEZOLID [Suspect]
     Active Substance: LINEZOLID
     Indication: Antibiotic therapy
     Dosage: UNK
     Route: 065
  2. LINEZOLID [Suspect]
     Active Substance: LINEZOLID
     Indication: Evidence based treatment
  3. MEROPENEM [Suspect]
     Active Substance: MEROPENEM
     Indication: Antibiotic therapy
     Dosage: UNK
     Route: 065
  4. MEROPENEM [Suspect]
     Active Substance: MEROPENEM
     Indication: Evidence based treatment

REACTIONS (3)
  - Jarisch-Herxheimer reaction [Recovering/Resolving]
  - Hypoxia [Recovering/Resolving]
  - Lung infiltration [Recovering/Resolving]
